FAERS Safety Report 9473752 (Version 2)
Quarter: 2013Q3

REPORT INFORMATION
  Report Type: Spontaneous
  Country: US (occurrence: US)
  Receive Date: 20130823
  Receipt Date: 20130823
  Transmission Date: 20140515
  Serious: Yes (Other)
  Sender: FDA-Public Use
  Company Number: US-BRISTOL-MYERS SQUIBB COMPANY-16955452

PATIENT
  Age: 67 Year
  Sex: Female

DRUGS (5)
  1. SPRYCEL [Suspect]
     Indication: CHRONIC MYELOID LEUKAEMIA
     Route: 048
  2. ATENOLOL [Concomitant]
     Indication: BLOOD PRESSURE
  3. LISINOPRIL [Concomitant]
     Indication: BLOOD PRESSURE
  4. LORAZEPAM [Concomitant]
     Indication: ANXIETY
  5. SUCRALFATE [Concomitant]
     Indication: ULCER

REACTIONS (2)
  - Ulcer haemorrhage [Unknown]
  - Pleural effusion [Unknown]
